FAERS Safety Report 9246589 (Version 1)
Quarter: 2013Q2

REPORT INFORMATION
  Report Type: Report from Study
  Country: DE (occurrence: DE)
  Receive Date: 20130422
  Receipt Date: 20130422
  Transmission Date: 20140414
  Serious: Yes (Hospitalization)
  Sender: FDA-Public Use
  Company Number: DE-ABBOTT-13P-062-1076214-00

PATIENT
  Age: 71 Year
  Sex: Male
  Weight: 85 kg

DRUGS (6)
  1. HUMIRA [Suspect]
     Indication: RHEUMATOID ARTHRITIS
     Route: 058
     Dates: start: 20120903
  2. PREDNISOLONE [Concomitant]
     Indication: RHEUMATOID ARTHRITIS
     Dates: start: 20120620
  3. ACTRAPHANE [Concomitant]
     Indication: DIABETES MELLITUS
     Dates: start: 2002
  4. RAMIPRIL [Concomitant]
     Indication: HYPERTENSION
     Dates: start: 2002
  5. TAMSULOSIN [Concomitant]
     Indication: BENIGN PROSTATIC HYPERPLASIA
     Dates: start: 2000
  6. TORSEMIDE [Concomitant]
     Indication: RENAL FAILURE
     Dates: start: 2002

REACTIONS (1)
  - Sciatica [Recovered/Resolved]
